FAERS Safety Report 18699395 (Version 1)
Quarter: 2021Q1

REPORT INFORMATION
  Report Type: Spontaneous
  Country: US (occurrence: US)
  Receive Date: 20210104
  Receipt Date: 20210104
  Transmission Date: 20210419
  Serious: No
  Sender: FDA-Public Use
  Company Number: US-MATRIXX INITIATIVES, INC.-2103905

PATIENT
  Age: 51 Year
  Sex: Male
  Weight: 81.82 kg

DRUGS (1)
  1. ZICAM NASAL ALLCLEAR NASAL CLEANSER SWABS [Suspect]
     Active Substance: EUCALYPTOL\MENTHOL
     Indication: NASOPHARYNGITIS
     Route: 045

REACTIONS (2)
  - Anosmia [None]
  - Ageusia [None]
